FAERS Safety Report 24960475 (Version 1)
Quarter: 2025Q1

REPORT INFORMATION
  Report Type: Spontaneous
  Country: JP (occurrence: JP)
  Receive Date: 20250212
  Receipt Date: 20250212
  Transmission Date: 20250408
  Serious: Yes (Death, Other)
  Sender: PFIZER
  Company Number: JP-TAKEDA-2025TJP001420

PATIENT

DRUGS (1)
  1. ADCETRIS [Suspect]
     Active Substance: BRENTUXIMAB VEDOTIN
     Route: 065

REACTIONS (4)
  - Pancreatitis acute [Fatal]
  - Acute respiratory distress syndrome [Fatal]
  - Diffuse alveolar damage [Fatal]
  - Haemophagocytic lymphohistiocytosis [Fatal]
